FAERS Safety Report 7162522-2 (Version None)
Quarter: 2010Q4

REPORT INFORMATION
  Report Type: 
  Country: None (occurrence: None)
  Receive Date: 20101215
  Receipt Date: 20101208
  Transmission Date: 20110411
  Serious: Yes (Hospitalization, Other)
  Sender: FDA-Public Use
  Company Number: TW-JNJFOC-20101103044

PATIENT
  Sex: Female
  Weight: 51.5 kg

DRUGS (3)
  1. ULTRACET [Suspect]
     Indication: OSTEOARTHRITIS
     Dosage: 3 TIMES A DAY
     Route: 048
  2. TERBINAFINE HCL [Suspect]
     Indication: ONYCHOMYCOSIS
     Route: 048
  3. LAMISIL [Suspect]
     Indication: ONYCHOMYCOSIS
     Route: 065

REACTIONS (13)
  - ACUTE HEPATIC FAILURE [None]
  - ALTERED STATE OF CONSCIOUSNESS [None]
  - BRADYCARDIA [None]
  - C-REACTIVE PROTEIN INCREASED [None]
  - CHOLELITHIASIS [None]
  - DYSPNOEA [None]
  - HEPATITIS ACUTE [None]
  - HYPOGLYCAEMIA [None]
  - METABOLIC ACIDOSIS [None]
  - PNEUMONIA [None]
  - RESPIRATORY FAILURE [None]
  - SEPSIS [None]
  - URINARY TRACT INFECTION [None]
